FAERS Safety Report 5501708-7 (Version None)
Quarter: 2007Q4

REPORT INFORMATION
  Report Type: 
  Country: None (occurrence: None)
  Receive Date: 20071030
  Receipt Date: 20071016
  Transmission Date: 20080405
  Serious: Yes (Hospitalization)
  Sender: FDA-Public Use
  Company Number: JP-AMGEN-US234513

PATIENT
  Sex: Female

DRUGS (9)
  1. ENBREL [Suspect]
     Indication: RHEUMATOID ARTHRITIS
     Route: 058
     Dates: start: 20060124, end: 20060307
  2. ENBREL [Suspect]
     Dosage: '25MG/0.7 WEEK'
     Route: 058
     Dates: start: 20060317, end: 20061204
  3. PROGRAF [Suspect]
     Indication: RHEUMATOID ARTHRITIS
     Route: 048
     Dates: start: 20061016
  4. MEDROL [Suspect]
     Indication: RHEUMATOID ARTHRITIS
     Route: 048
     Dates: start: 20050501
  5. TOWARAT [Concomitant]
     Indication: HYPERTENSION
     Route: 048
     Dates: start: 20060117
  6. NEORAL [Concomitant]
     Indication: DERMATOMYOSITIS
     Route: 048
     Dates: start: 20050501, end: 20061015
  7. MICARDIS [Concomitant]
     Indication: HYPERTENSION
     Route: 048
     Dates: start: 20060117
  8. ISCOTIN [Concomitant]
     Indication: ANTIBIOTIC PROPHYLAXIS
     Route: 048
     Dates: start: 20060124, end: 20061204
  9. PENTAMIDINE ISETHIONATE [Concomitant]
     Route: 055

REACTIONS (1)
  - PNEUMOCYSTIS JIROVECI PNEUMONIA [None]
